FAERS Safety Report 10395945 (Version 1)
Quarter: 2014Q1

REPORT INFORMATION
  Report Type: Spontaneous
  Country: US (occurrence: None)
  Receive Date: 20130524
  Receipt Date: 20130524
  Transmission Date: 20141002
  Serious: Yes (Other)
  Sender: FDA-Public Use
  Company Number: PHEH2012US022851

PATIENT
  Age: 32 Year
  Sex: Female
  Weight: 68.7 kg

DRUGS (12)
  1. GILENYA [Suspect]
     Indication: MULTIPLE SCLEROSIS
     Dates: start: 201103
  2. SEVEN SEAS VITAMIN E (TROCOPHERYL ACETATE) [Concomitant]
  3. VITAMIN C (ASCORBIC ACID) [Concomitant]
  4. ADDITIVIA CALCIUM (CALCIUM CARBONATE) [Concomitant]
  5. MULTI-VITAMINS VITAFIT (CALCIUM PANTOTHENATE, FOLIC ACID, VITAMINS NOS) [Concomitant]
  6. AOV VITAMINS VITAFIT (CALCIUM PANTOTHENATE, FOLIC ACID, VITAMINS NOS) [Concomitant]
  7. AOV VITAMIN D3 (CALCIFEROL) [Concomitant]
  8. LECITHIN [Concomitant]
  9. ZINC [Concomitant]
  10. ALFALFA (MEDICAGO SATIVA) [Concomitant]
  11. GLUCOSAMINE + CHONDROITIN (CHONDROITIN SULFATE, GLUCOSAMINE SULFATE)DE [Concomitant]
  12. SOYAPROTECT-MENO (GLYCINE MAX EXTRACT) [Concomitant]

REACTIONS (2)
  - White blood cell count decreased [None]
  - Leukopenia [None]
